FAERS Safety Report 18697959 (Version 8)
Quarter: 2021Q3

REPORT INFORMATION
  Report Type: Spontaneous
  Country: US (occurrence: US)
  Receive Date: 20210105
  Receipt Date: 20210915
  Transmission Date: 20211014
  Serious: No
  Sender: FDA-Public Use
  Company Number: US-BRISTOL-MYERS SQUIBB COMPANY-BMS-2021-000086

PATIENT
  Age: 46 Year
  Sex: Female

DRUGS (6)
  1. SPRYCEL [Suspect]
     Active Substance: DASATINIB
     Indication: CHRONIC MYELOID LEUKAEMIA
     Dosage: 50 MILLIGRAM, DAILY
     Route: 048
     Dates: start: 20191228
  2. SPRYCEL [Suspect]
     Active Substance: DASATINIB
     Dosage: 40 MILLIGRAM, DAILY
     Route: 048
     Dates: start: 20210722
  3. SPRYCEL [Suspect]
     Active Substance: DASATINIB
     Dosage: 70 MILLIGRAM, QD
     Route: 048
     Dates: start: 201912
  4. SPRYCEL [Suspect]
     Active Substance: DASATINIB
     Dosage: 50 MILLIGRAM, QD
     Route: 048
     Dates: start: 20201110
  5. SPRYCEL [Suspect]
     Active Substance: DASATINIB
     Dosage: 50 MILLIGRAM, QD
     Route: 048
     Dates: start: 20201030
  6. SPRYCEL [Suspect]
     Active Substance: DASATINIB
     Dosage: 40 MILLIGRAM, QD
     Route: 048
     Dates: start: 202107

REACTIONS (9)
  - Fatigue [Unknown]
  - Mental status changes [Unknown]
  - Executive dysfunction [Unknown]
  - Feeling abnormal [Unknown]
  - Disturbance in attention [Unknown]
  - Aphasia [Unknown]
  - Cognitive disorder [Unknown]
  - Memory impairment [Unknown]
  - General physical health deterioration [Unknown]

NARRATIVE: CASE EVENT DATE: 202012
